FAERS Safety Report 9867655 (Version 5)
Quarter: 2014Q3

REPORT INFORMATION
  Report Type: Spontaneous
  Country: NO (occurrence: NO)
  Receive Date: 20140204
  Receipt Date: 20140724
  Transmission Date: 20150326
  Serious: Yes (Death, Other)
  Sender: FDA-Public Use
  Company Number: NO-PFIZER INC-2013347785

PATIENT
  Age: 17 Year
  Sex: Female

DRUGS (21)
  1. CISPLATIN. [Suspect]
     Active Substance: CISPLATIN
     Dosage: 120 MG/M2 (TOTAL DOSE: 580 MG/M2)
  2. ETOPOSIDE. [Suspect]
     Active Substance: ETOPOSIDE
     Dosage: 500 MG/M2, UNK
  3. DOXORUBICIN HYDROCHLORIDE. [Suspect]
     Active Substance: DOXORUBICIN HYDROCHLORIDE
     Indication: METASTASES TO BONE
     Dosage: 75 MG/M2, UNK
  4. CISPLATIN. [Suspect]
     Active Substance: CISPLATIN
     Indication: BONE SARCOMA
     Dosage: 120 MG/M2, UNK
  5. CISPLATIN. [Suspect]
     Active Substance: CISPLATIN
     Indication: METASTASES TO LUNG
     Dosage: 120 MG/M2, UNK
  6. DOXORUBICIN HYDROCHLORIDE. [Suspect]
     Active Substance: DOXORUBICIN HYDROCHLORIDE
     Dosage: 75 MG/M2 (TOTAL: 450 MG/M2)
  7. METHOTREXATE SODIUM. [Suspect]
     Active Substance: METHOTREXATE SODIUM
     Indication: METASTASES TO LUNG
     Dosage: 12 G /M2 (TOTAL DOSE: 24000 MG/M2)
  8. ETOPOSIDE. [Suspect]
     Active Substance: ETOPOSIDE
     Dosage: 500 MG/M2, UNK
  9. METHOTREXATE SODIUM. [Suspect]
     Active Substance: METHOTREXATE SODIUM
     Indication: METASTASES TO BONE
  10. CISPLATIN. [Suspect]
     Active Substance: CISPLATIN
     Dosage: 120 MG/M2, UNK
  11. ETOPOSIDE. [Suspect]
     Active Substance: ETOPOSIDE
     Dosage: 500 MG/M2, UNK
  12. IFOSFAMIDE. [Suspect]
     Active Substance: IFOSFAMIDE
     Dosage: 14 G/M2
  13. IFOSFAMIDE. [Suspect]
     Active Substance: IFOSFAMIDE
     Dosage: 9 G/M2
  14. IFOSFAMIDE. [Suspect]
     Active Substance: IFOSFAMIDE
     Dosage: 6 G/M2 (TOTAL 77200 MG/M2)
  15. DOXORUBICIN HYDROCHLORIDE. [Suspect]
     Active Substance: DOXORUBICIN HYDROCHLORIDE
     Indication: METASTASES TO LUNG
     Dosage: 75 MG/M2, UNK
  16. METHOTREXATE SODIUM. [Suspect]
     Active Substance: METHOTREXATE SODIUM
     Indication: BONE SARCOMA
     Dosage: 12 G /M2
  17. DOXORUBICIN HYDROCHLORIDE. [Suspect]
     Active Substance: DOXORUBICIN HYDROCHLORIDE
     Indication: BONE SARCOMA
     Dosage: 75 MG/M2, UNK
  18. DOXORUBICIN HYDROCHLORIDE. [Suspect]
     Active Substance: DOXORUBICIN HYDROCHLORIDE
     Dosage: 75 MG/M2, UNK
  19. CISPLATIN. [Suspect]
     Active Substance: CISPLATIN
     Indication: METASTASES TO BONE
     Dosage: 120 MG/M2, UNK
  20. ETOPOSIDE. [Suspect]
     Active Substance: ETOPOSIDE
     Dosage: 500 MG/M2 (TOTAL DOSE: 2000 MG/M2)
  21. DOXORUBICIN HYDROCHLORIDE. [Suspect]
     Active Substance: DOXORUBICIN HYDROCHLORIDE
     Dosage: 75 MG/M2, UNK

REACTIONS (10)
  - Off label use [Unknown]
  - Malignant neoplasm progression [Unknown]
  - Thrombocytopenia [Unknown]
  - Osteosarcoma metastatic [Unknown]
  - Chest pain [Fatal]
  - Pneumonitis [Fatal]
  - Dyspnoea [Fatal]
  - Pyrexia [Unknown]
  - Pulmonary toxicity [Fatal]
  - Rash [Unknown]
